FAERS Safety Report 8578867-5 (Version None)
Quarter: 2012Q3

REPORT INFORMATION
  Report Type: 
  Country: None (occurrence: None)
  Receive Date: 20120808
  Receipt Date: 20120731
  Transmission Date: 20120928
  Serious: Yes (Other)
  Sender: FDA-Public Use
  Company Number: US-VERTEX PHARMACEUTICALS INC.-AE-2012-009991

PATIENT
  Sex: Female
  Weight: 83.99 kg

DRUGS (4)
  1. COPEGUS [Concomitant]
     Dates: start: 20120501
  2. INCIVEK [Suspect]
     Indication: HEPATITIS C
     Route: 048
     Dates: start: 20120426, end: 20120719
  3. PEGASYS [Concomitant]
     Indication: HEPATITIS C
     Route: 058
     Dates: start: 20120426
  4. COPEGUS [Concomitant]
     Indication: HEPATITIS C
     Dates: start: 20120426, end: 20120501

REACTIONS (8)
  - LOSS OF CONSCIOUSNESS [None]
  - NAUSEA [None]
  - DIZZINESS [None]
  - FATIGUE [None]
  - WEIGHT INCREASED [None]
  - HAEMOGLOBIN DECREASED [None]
  - FEELING HOT [None]
  - RASH PRURITIC [None]
